FAERS Safety Report 5768502 (Version 3)
Quarter: 2020Q3

REPORT INFORMATION
  Report Type: Report from Study
  Country: US (occurrence: US)
  Receive Date: 20050331
  Receipt Date: 20050408
  Transmission Date: 20201105
  Serious: Yes (Death, Hospitalization, Other)
  Sender: FDA-Public Use
  Company Number: US-JNJFOC-20050306525

PATIENT
  Age: 73 Year
  Sex: Male

DRUGS (4)
  1. UNSPECIFIED INGREDIENT [Concomitant]
     Active Substance: UNSPECIFIED INGREDIENT
  2. ANTI?TNF THERAPY [Concomitant]
  3. INFLIXIMAB [Suspect]
     Active Substance: INFLIXIMAB
     Route: 042
  4. INFLIXIMAB [Suspect]
     Active Substance: INFLIXIMAB
     Indication: RHEUMATOID ARTHRITIS
     Route: 042

REACTIONS (14)
  - Pathological fracture [None]
  - Intestinal perforation [None]
  - Post procedural complication [None]
  - Chest pain [None]
  - Thrombocytopenia [None]
  - Arrhythmia [None]
  - Acute respiratory distress syndrome [None]
  - Myocardial infarction [None]
  - Back pain [None]
  - Intestinal obstruction [None]
  - Hypokalaemia [None]
  - Peritonitis [None]
  - Plasma cell myeloma [Fatal]
  - Deep vein thrombosis [None]

NARRATIVE: CASE EVENT DATE: 20041007
